FAERS Safety Report 9245864 (Version 4)
Quarter: 2013Q4

REPORT INFORMATION
  Report Type: Spontaneous
  Country: US (occurrence: US)
  Receive Date: 20130422
  Receipt Date: 20131009
  Transmission Date: 20140711
  Serious: Yes (Other)
  Sender: FDA-Public Use
  Company Number: US-JNJFOC-20130411605

PATIENT
  Age: 22 Year
  Sex: Female

DRUGS (9)
  1. REMICADE [Suspect]
     Indication: CROHN^S DISEASE
     Route: 042
     Dates: start: 20050423, end: 20050812
  2. REMICADE [Suspect]
     Indication: CROHN^S DISEASE
     Route: 042
     Dates: start: 2001
  3. AZATHIOPRINE [Suspect]
     Indication: CROHN^S DISEASE
     Route: 065
     Dates: end: 2005
  4. AZATHIOPRINE [Suspect]
     Indication: CROHN^S DISEASE
     Route: 065
     Dates: start: 20010907, end: 2001
  5. PREDNISONE [Suspect]
     Indication: CROHN^S DISEASE
     Route: 065
     Dates: start: 20010907, end: 20020116
  6. 6-MP [Suspect]
     Indication: PRODUCT USED FOR UNKNOWN INDICATION
     Route: 065
  7. ASACOL [Concomitant]
     Indication: CROHN^S DISEASE
     Route: 065
     Dates: start: 20010907, end: 20010921
  8. TYLENOL EXTRA STRENGTH [Concomitant]
     Route: 065
  9. MIDOL NOS [Concomitant]
     Route: 065

REACTIONS (4)
  - Papillary thyroid cancer [Recovering/Resolving]
  - Tonsillectomy [Unknown]
  - Appendicectomy [Unknown]
  - Colectomy [Unknown]
